APPROVED DRUG PRODUCT: VORICONAZOLE
Active Ingredient: VORICONAZOLE
Strength: 200MG/5ML
Dosage Form/Route: FOR SUSPENSION;ORAL
Application: A206799 | Product #001 | TE Code: AB
Applicant: NOVEL LABORATORIES INC
Approved: May 31, 2016 | RLD: No | RS: No | Type: RX